FAERS Safety Report 23273704 (Version 1)
Quarter: 2023Q4

REPORT INFORMATION
  Report Type: Spontaneous
  Country: US (occurrence: US)
  Receive Date: 20231207
  Receipt Date: 20231207
  Transmission Date: 20240110
  Serious: No
  Sender: FDA-Public Use
  Company Number: US-PHARMAESSENTIA CORPORATION-US-2023-PEC-002272

PATIENT
  Sex: Male

DRUGS (7)
  1. BESREMI [Suspect]
     Active Substance: ROPEGINTERFERON ALFA-2B-NJFT
     Indication: Polycythaemia vera
     Dosage: 100 MCG, Q2W
     Route: 058
     Dates: start: 202202
  2. BESREMI [Suspect]
     Active Substance: ROPEGINTERFERON ALFA-2B-NJFT
     Dosage: 300 MCG, Q2W
     Route: 058
  3. LIPITOR [Concomitant]
     Active Substance: ATORVASTATIN CALCIUM
     Indication: Product used for unknown indication
     Route: 065
  4. ASPIRIN [Concomitant]
     Active Substance: ASPIRIN
     Indication: Product used for unknown indication
     Route: 065
  5. CARTIA XT [Concomitant]
     Active Substance: DILTIAZEM HYDROCHLORIDE
     Indication: Product used for unknown indication
     Route: 065
  6. IMDUR [Concomitant]
     Active Substance: ISOSORBIDE MONONITRATE
     Indication: Product used for unknown indication
     Route: 065
  7. OLMESARTAN [Concomitant]
     Active Substance: OLMESARTAN
     Indication: Product used for unknown indication
     Route: 065

REACTIONS (5)
  - Arteriospasm coronary [Recovered/Resolved]
  - Cardiac stress test abnormal [Unknown]
  - Nasopharyngitis [Unknown]
  - Hepatic enzyme increased [Unknown]
  - Nausea [Unknown]
